FAERS Safety Report 8495206-9 (Version None)
Quarter: 2012Q3

REPORT INFORMATION
  Report Type: 
  Country: None (occurrence: None)
  Receive Date: 20120709
  Receipt Date: 20120628
  Transmission Date: 20120928
  Serious: Yes (Hospitalization)
  Sender: FDA-Public Use
  Company Number: FR-ASTRAZENECA-2012SE44695

PATIENT
  Age: 15 Year
  Sex: Female

DRUGS (4)
  1. SPASFON [Concomitant]
  2. OMEPRAZOLE [Suspect]
     Route: 048
  3. IBUPROFEN [Suspect]
     Indication: ABDOMINAL PAIN
     Route: 048
     Dates: start: 20111129, end: 20111130
  4. METEOSPASMYL [Concomitant]

REACTIONS (3)
  - RENAL FAILURE [None]
  - ABDOMINAL PAIN UPPER [None]
  - VOMITING [None]
